FAERS Safety Report 10906007 (Version 1)
Quarter: 2015Q1

REPORT INFORMATION
  Report Type: Spontaneous
  Country: US (occurrence: US)
  Receive Date: 20150311
  Receipt Date: 20150311
  Transmission Date: 20150721
  Serious: Yes (Other)
  Sender: FDA-Public Use
  Company Number: PHHY2015US025650

PATIENT
  Age: 26 Year
  Sex: Female

DRUGS (1)
  1. METHYLPREDNISOLONE. [Suspect]
     Active Substance: METHYLPREDNISOLONE
     Indication: MIGRAINE
     Route: 042

REACTIONS (12)
  - Cardiomyopathy [Unknown]
  - Pulmonary oedema [Unknown]
  - Anaphylactic reaction [Unknown]
  - Type I hypersensitivity [Unknown]
  - Ventricular hypokinesia [Unknown]
  - Cardiac disorder [Unknown]
  - Left ventricular dysfunction [Unknown]
  - Respiratory distress [Unknown]
  - Ejection fraction decreased [Unknown]
  - Rash [Unknown]
  - Urticaria [Unknown]
  - Erythema [Unknown]
